FAERS Safety Report 4294027-0 (Version None)
Quarter: 2004Q1

REPORT INFORMATION
  Report Type: 
  Country: None (occurrence: None)
  Receive Date: 20040210
  Receipt Date: 20040126
  Transmission Date: 20041129
  Serious: Yes (Other)
  Sender: FDA-Public Use
  Company Number: 191319

PATIENT
  Age: 56 Year
  Sex: Male
  Weight: 99.7913 kg

DRUGS (3)
  1. AVONEX [Suspect]
     Indication: MULTIPLE SCLEROSIS
     Dosage: 30 MCG QW IM
     Route: 030
     Dates: start: 19990101, end: 20030801
  2. AVONEX [Suspect]
     Indication: MULTIPLE SCLEROSIS
     Dosage: 30 MCG QW IM
     Route: 030
     Dates: start: 20030801
  3. LIPITOR [Concomitant]

REACTIONS (4)
  - DIALYSIS [None]
  - MULTIPLE SCLEROSIS [None]
  - RENAL FAILURE [None]
  - RENAL HYPERTENSION [None]
